FAERS Safety Report 20706939 (Version 1)
Quarter: 2022Q2

REPORT INFORMATION
  Report Type: Spontaneous
  Country: CN (occurrence: CN)
  Receive Date: 20220413
  Receipt Date: 20220413
  Transmission Date: 20220721
  Serious: Yes (Hospitalization, Other)
  Sender: FDA-Public Use
  Company Number: CN-SLATE RUN PHARMACEUTICALS-22CN001023

PATIENT

DRUGS (3)
  1. VANCOMYCIN HYDROCHLORIDE [Suspect]
     Active Substance: VANCOMYCIN HYDROCHLORIDE
     Indication: Staphylococcal infection
     Dosage: 0.5 GRAM, Q 8 HR
     Dates: start: 2020, end: 20200604
  2. VANCOMYCIN HYDROCHLORIDE [Suspect]
     Active Substance: VANCOMYCIN HYDROCHLORIDE
     Dosage: 1 GRAM, Q 12 HR
     Dates: start: 20200527, end: 2020
  3. UNSPECIFIED INGREDIENT [Suspect]
     Active Substance: UNSPECIFIED INGREDIENT
     Indication: Product used for unknown indication
     Dosage: UNK
     Dates: start: 20200527

REACTIONS (9)
  - Staphylococcal sepsis [Recovered/Resolved]
  - Staphylococcal bacteraemia [Recovered/Resolved]
  - Staphylococcal infection [Recovered/Resolved]
  - Pneumonia staphylococcal [Recovered/Resolved]
  - Renal failure [Unknown]
  - Pleural effusion [Unknown]
  - Escherichia urinary tract infection [Unknown]
  - Ureteric obstruction [Unknown]
  - Treatment failure [Recovered/Resolved]

NARRATIVE: CASE EVENT DATE: 20200101
